FAERS Safety Report 9285806 (Version 1)
Quarter: 2013Q2

REPORT INFORMATION
  Report Type: Spontaneous
  Country: US (occurrence: None)
  Receive Date: 20130510
  Receipt Date: 20130510
  Transmission Date: 20140414
  Serious: Yes (Other)
  Sender: FDA-Public Use
  Company Number: None

PATIENT
  Age: 51 Year
  Sex: Male

DRUGS (1)
  1. METOPROLOL SUCCINATE ER [Suspect]
     Indication: HYPERTROPHIC CARDIOMYOPATHY
     Route: 048
     Dates: start: 20111101, end: 20120401

REACTIONS (4)
  - Disease progression [None]
  - Hypertrophic cardiomyopathy [None]
  - Product substitution issue [None]
  - Therapeutic response unexpected with drug substitution [None]
